FAERS Safety Report 22924989 (Version 6)
Quarter: 2024Q2

REPORT INFORMATION
  Report Type: Spontaneous
  Country: US (occurrence: US)
  Receive Date: 20230908
  Receipt Date: 20240419
  Transmission Date: 20240716
  Serious: Yes (Death, Hospitalization, Other)
  Sender: FDA-Public Use
  Company Number: US-PFIZER INC-PV202300152268

PATIENT
  Age: 92 Year
  Sex: Male
  Weight: 79.365 kg

DRUGS (2)
  1. VYNDAMAX [Suspect]
     Active Substance: TAFAMIDIS
     Indication: Amyloidosis
     Dosage: 61 MG
     Dates: start: 20230206
  2. VYNDAMAX [Suspect]
     Active Substance: TAFAMIDIS
     Indication: Amyloidosis
     Dosage: 20 MG, DAILY
     Dates: start: 20230221

REACTIONS (6)
  - Cardiac failure congestive [Fatal]
  - Amyloidosis [Fatal]
  - Disease progression [Fatal]
  - Aortic stenosis [Fatal]
  - Cerebrovascular accident [Unknown]
  - Off label use [Unknown]

NARRATIVE: CASE EVENT DATE: 20230221
